FAERS Safety Report 13547572 (Version 1)
Quarter: 2017Q2

REPORT INFORMATION
  Report Type: Report from Study
  Country: None (occurrence: US)
  Receive Date: 20170515
  Receipt Date: 20170515
  Transmission Date: 20170830
  Serious: Yes (Hospitalization)
  Sender: FDA-Public Use
  Company Number: US-ABBVIE-17K-163-1876653-00

PATIENT
  Age: 51 Year
  Sex: Male

DRUGS (3)
  1. HUMIRA [Suspect]
     Active Substance: ADALIMUMAB
     Indication: RHEUMATOID ARTHRITIS
     Route: 058
     Dates: start: 2006
  2. HUMIRA [Suspect]
     Active Substance: ADALIMUMAB
     Indication: CROHN^S DISEASE
  3. HUMIRA [Suspect]
     Active Substance: ADALIMUMAB
     Indication: PRODUCT USED FOR UNKNOWN INDICATION
     Route: 058
     Dates: start: 2005, end: 2006

REACTIONS (8)
  - Functional gastrointestinal disorder [Unknown]
  - Abdominal adhesions [Unknown]
  - Post procedural complication [Unknown]
  - Vomiting [Unknown]
  - Gastrointestinal pain [Unknown]
  - Crohn^s disease [Unknown]
  - Post procedural complication [Unknown]
  - Procedural pain [Unknown]

NARRATIVE: CASE EVENT DATE: 2007
